FAERS Safety Report 10098699 (Version 1)
Quarter: 2014Q2

REPORT INFORMATION
  Report Type: Spontaneous
  Country: FR (occurrence: FR)
  Receive Date: 20140423
  Receipt Date: 20140423
  Transmission Date: 20141212
  Serious: Yes (Hospitalization)
  Sender: FDA-Public Use
  Company Number: FR-JNJFOC-20140412939

PATIENT
  Age: 73 Year
  Sex: Female

DRUGS (12)
  1. XARELTO [Suspect]
     Indication: PRODUCT USED FOR UNKNOWN INDICATION
     Route: 048
     Dates: start: 201401, end: 20140214
  2. LYRICA [Concomitant]
     Route: 065
  3. ATARAX [Concomitant]
     Route: 065
  4. LAROXYL [Concomitant]
     Route: 065
  5. ECONAZOLE [Concomitant]
     Route: 065
  6. OXYCODONE [Concomitant]
     Route: 065
  7. DAFALGAN [Concomitant]
     Route: 065
  8. AMLOR [Concomitant]
     Route: 065
  9. PHLOROGLUCINOL [Concomitant]
     Route: 065
  10. PRAZEPAM [Concomitant]
     Route: 065
  11. LOVENOX [Concomitant]
     Route: 065
  12. KALEORID [Concomitant]
     Route: 065

REACTIONS (1)
  - Dermatitis bullous [Recovering/Resolving]
